FAERS Safety Report 5946679-4 (Version None)
Quarter: 2008Q4

REPORT INFORMATION
  Report Type: 
  Country: None (occurrence: None)
  Receive Date: 20081110
  Receipt Date: 20080808
  Transmission Date: 20090506
  Serious: No
  Sender: FDA-Public Use
  Company Number: A0741793A

PATIENT
  Age: 68 Year
  Sex: Female

DRUGS (4)
  1. ALTABAX [Suspect]
     Indication: ORAL INFECTION
     Dosage: 1APP SINGLE DOSE
     Route: 061
     Dates: start: 20080804, end: 20080804
  2. LIPITOR [Concomitant]
  3. AMITRIPTYLINE HCL [Concomitant]
  4. VALIUM [Concomitant]

REACTIONS (5)
  - CHEILITIS [None]
  - LIP SWELLING [None]
  - ORAL DISCOMFORT [None]
  - OROPHARYNGEAL BLISTERING [None]
  - THROAT IRRITATION [None]
